FAERS Safety Report 6311472-X (Version None)
Quarter: 2009Q3

REPORT INFORMATION
  Report Type: 
  Country: None (occurrence: None)
  Receive Date: 20090817
  Receipt Date: 20090716
  Transmission Date: 20100115
  Serious: No
  Sender: FDA-Public Use
  Company Number: US-BAYER-200927119NA

PATIENT
  Age: 66 Year
  Sex: Female

DRUGS (5)
  1. CIPRO [Suspect]
     Indication: PNEUMONIA
     Dates: start: 20090301, end: 20090301
  2. THYROID TAB [Suspect]
     Indication: HYPOTHYROIDISM
     Dosage: TOTAL DAILY DOSE: 180 MG
     Route: 048
     Dates: start: 20090201
  3. DICLOFENAC [Concomitant]
  4. BENADRYL [Concomitant]
  5. TRAZODONE HCL [Concomitant]

REACTIONS (4)
  - ALOPECIA [None]
  - EXTRASYSTOLES [None]
  - HEART RATE DECREASED [None]
  - PRURITUS [None]
